FAERS Safety Report 9937993 (Version 2)
Quarter: 2014Q1

REPORT INFORMATION
  Report Type: Spontaneous
  Country: JP (occurrence: JP)
  Receive Date: 20140303
  Receipt Date: 20140303
  Transmission Date: 20141002
  Serious: Yes (Disabling, Other)
  Sender: FDA-Public Use
  Company Number: JP-009507513-1311JPN007220

PATIENT
  Age: 68 Year
  Sex: Female

DRUGS (5)
  1. FOSAMAC TABLETS 35MG [Suspect]
     Indication: OSTEOPOROSIS
     Dosage: DAILY DOSAGE UNKNOWN
     Route: 048
     Dates: start: 201005, end: 201009
  2. RHEUMATREX [Concomitant]
     Indication: RHEUMATOID ARTHRITIS
     Dosage: DAILY DOSAGE UNKNOWN
     Route: 048
  3. ALDACTONE A [Concomitant]
     Dosage: DAILY DOSE UNKNOWN, POR FORMULATION
     Route: 048
  4. HALFDIGOXIN [Concomitant]
     Dosage: DAILY DOSE UNKNOWN, POR FORMULATION
     Route: 048
  5. WARFARIN POTASSIUM [Concomitant]
     Dosage: FORMULATION :POR, DAILY DOSE UNKNOWN
     Route: 048

REACTIONS (2)
  - Osteonecrosis of jaw [Unknown]
  - Sequestrectomy [Unknown]
